FAERS Safety Report 5968242-1 (Version None)
Quarter: 2008Q4

REPORT INFORMATION
  Report Type: 
  Country: None (occurrence: None)
  Receive Date: 20081126
  Receipt Date: 20081121
  Transmission Date: 20090506
  Serious: Yes (Death)
  Sender: FDA-Public Use
  Company Number: HU-ABBOTT-08P-076-0450681-00

PATIENT
  Sex: Male
  Weight: 50 kg

DRUGS (1)
  1. LUCRIN DEPOT INJECTION [Suspect]
     Indication: PROSTATE CANCER
     Route: 030
     Dates: start: 20070516, end: 20080227

REACTIONS (2)
  - CACHEXIA [None]
  - CARDIOPULMONARY FAILURE [None]
